FAERS Safety Report 4961992-5 (Version None)
Quarter: 2006Q2

REPORT INFORMATION
  Report Type: 
  Country: None (occurrence: None)
  Receive Date: 20060404
  Receipt Date: 20051021
  Transmission Date: 20061013
  Serious: Yes (Hospitalization, Disabling)
  Sender: FDA-Public Use
  Company Number: US-MERCK-0510USA08860

PATIENT
  Age: 57 Year
  Sex: Male
  Weight: 90 kg

DRUGS (28)
  1. VIOXX [Suspect]
     Indication: BACK PAIN
     Route: 048
     Dates: start: 20010917, end: 20040101
  2. VIOXX [Suspect]
     Route: 048
     Dates: start: 20040720
  3. VIOXX [Suspect]
     Route: 048
     Dates: start: 20010917, end: 20040101
  4. VIOXX [Suspect]
     Route: 048
     Dates: start: 20010917, end: 20040101
  5. LOVENOX [Concomitant]
     Route: 065
  6. ASPIRIN [Concomitant]
     Route: 065
  7. PRILOSEC [Concomitant]
     Route: 065
  8. PROTONIX [Concomitant]
     Route: 065
  9. SKELAXIN [Concomitant]
     Route: 065
  10. COUMADIN [Concomitant]
     Route: 065
  11. ACYCLOVIR [Concomitant]
     Route: 065
  12. OPIUM [Concomitant]
     Route: 065
  13. ACIPHEX [Concomitant]
     Route: 065
  14. VICODIN [Concomitant]
     Route: 065
  15. FERRIC SULFATE [Concomitant]
     Route: 065
  16. GLUCOSAMINE [Concomitant]
     Route: 065
  17. CHONDROITIN [Concomitant]
     Route: 065
  18. CITRUCEL [Concomitant]
     Route: 065
  19. LIPITOR [Concomitant]
     Route: 065
  20. QUESTRAN [Concomitant]
     Route: 065
  21. ZOVIRAX [Concomitant]
     Route: 065
  22. TRICOR [Concomitant]
     Route: 065
  23. ACETAMINOPHEN AND HYDROCODONE BITARTRATE [Concomitant]
     Route: 065
  24. BIAXIN [Concomitant]
     Route: 065
  25. CHOLESTEROL [Concomitant]
     Route: 065
  26. CEPHALEXIN [Concomitant]
     Route: 065
  27. BACTROBAN [Concomitant]
     Route: 065
  28. CORMAX (CLOBETASOL PROPIONATE) [Concomitant]
     Route: 065

REACTIONS (17)
  - ABDOMINAL PAIN [None]
  - ANAEMIA [None]
  - BACK PAIN [None]
  - COLONIC OBSTRUCTION [None]
  - COUGH [None]
  - DEEP VEIN THROMBOSIS [None]
  - DIARRHOEA [None]
  - DYSPNOEA [None]
  - GASTROINTESTINAL HAEMORRHAGE [None]
  - GASTROOESOPHAGEAL REFLUX DISEASE [None]
  - HAEMATURIA [None]
  - HYPERLIPIDAEMIA [None]
  - HYPERTRIGLYCERIDAEMIA [None]
  - MELAENA [None]
  - OVERDOSE [None]
  - PRURITUS [None]
  - PULMONARY EMBOLISM [None]
